FAERS Safety Report 7791597-2 (Version None)
Quarter: 2011Q4

REPORT INFORMATION
  Report Type: 
  Country: None (occurrence: None)
  Receive Date: 20111003
  Receipt Date: 20110926
  Transmission Date: 20120403
  Serious: Yes (Death)
  Sender: FDA-Public Use
  Company Number: US-ASTELLAS-2011EU006596

PATIENT
  Age: 48 Year
  Sex: Male

DRUGS (2)
  1. TACROLIMUS [Suspect]
     Dosage: UNK
     Route: 065
  2. COLCHICINE [Interacting]
     Dosage: UNK
     Route: 065

REACTIONS (1)
  - DRUG INTERACTION [None]
